FAERS Safety Report 21748853 (Version 2)
Quarter: 2022Q4

REPORT INFORMATION
  Report Type: Spontaneous
  Country: JP (occurrence: JP)
  Receive Date: 20221219
  Receipt Date: 20221228
  Transmission Date: 20230113
  Serious: Yes (Other)
  Sender: FDA-Public Use
  Company Number: JP-CHUGAI-2022049699

PATIENT
  Age: 7 Decade
  Sex: Male

DRUGS (3)
  1. XELODA [Suspect]
     Active Substance: CAPECITABINE
     Indication: Rectal cancer
     Dosage: UNK
     Route: 048
  2. HERBALS [Suspect]
     Active Substance: HERBALS
     Indication: Fat tissue increased
     Dosage: UNK
     Route: 048
  3. OXALIPLATIN [Concomitant]
     Active Substance: OXALIPLATIN
     Indication: Rectal cancer
     Route: 041

REACTIONS (3)
  - Coronavirus infection [Recovered/Resolved]
  - Interstitial lung disease [Recovering/Resolving]
  - Fat tissue increased [Unknown]

NARRATIVE: CASE EVENT DATE: 20221201
